FAERS Safety Report 4942300-2 (Version None)
Quarter: 2006Q1

REPORT INFORMATION
  Report Type: 
  Country: None (occurrence: None)
  Receive Date: 20060313
  Receipt Date: 20051116
  Transmission Date: 20060701
  Serious: No
  Sender: FDA-Public Use
  Company Number: US-GLAXOSMITHKLINE-A0582508A

PATIENT

DRUGS (1)
  1. NICORETTE [Suspect]

REACTIONS (2)
  - HEART RATE IRREGULAR [None]
  - OEDEMA PERIPHERAL [None]
